FAERS Safety Report 6741962-7 (Version None)
Quarter: 2010Q2

REPORT INFORMATION
  Report Type: 
  Country: None (occurrence: None)
  Receive Date: 20100526
  Receipt Date: 20100518
  Transmission Date: 20101027
  Serious: Yes (Death, Hospitalization)
  Sender: FDA-Public Use
  Company Number: AU-SANOFI-AVENTIS-2010SA014009

PATIENT
  Age: 76 Year
  Sex: Male

DRUGS (4)
  1. TAXOTERE [Suspect]
     Indication: PROSTATE CANCER
     Route: 042
     Dates: start: 20100208, end: 20100208
  2. BLINDED THERAPY [Suspect]
     Indication: PROSTATE CANCER
     Route: 048
     Dates: start: 20100208
  3. PREDNISONE TAB [Suspect]
     Indication: PROSTATE CANCER
     Route: 048
     Dates: start: 20100208
  4. DEXAMETHASONE [Suspect]
     Indication: PREMEDICATION
     Route: 048

REACTIONS (8)
  - CONFUSIONAL STATE [None]
  - CONSTIPATION [None]
  - DEHYDRATION [None]
  - DIARRHOEA [None]
  - GASTROINTESTINAL HAEMORRHAGE [None]
  - NEUTROPENIA [None]
  - URINARY TRACT INFECTION [None]
  - VOMITING [None]
